FAERS Safety Report 4836472-8 (Version None)
Quarter: 2005Q4

REPORT INFORMATION
  Report Type: 
  Country: None (occurrence: None)
  Receive Date: 20051123
  Receipt Date: 20051116
  Transmission Date: 20060501
  Serious: Yes (Other)
  Sender: FDA-Public Use
  Company Number: PHEH2005US12705

PATIENT
  Sex: Male

DRUGS (7)
  1. ENABLEX [Suspect]
     Indication: HYPERTONIC BLADDER
     Dosage: 15 MG, QD
     Dates: start: 20051028, end: 20051031
  2. LIPITOR /NET/ [Concomitant]
  3. NIASPAN [Concomitant]
  4. HYDROCHLOROTHIAZIDE [Concomitant]
  5. GLUCOPHAGE [Concomitant]
  6. ALTACE [Concomitant]
  7. POTASSIUM [Concomitant]

REACTIONS (1)
  - DEPRESSION [None]
